FAERS Safety Report 25756088 (Version 3)
Quarter: 2025Q4

REPORT INFORMATION
  Report Type: Report from Study
  Country: US (occurrence: US)
  Receive Date: 20250903
  Receipt Date: 20251015
  Transmission Date: 20260118
  Serious: Yes (Hospitalization)
  Sender: PFIZER
  Company Number: US-PFIZER INC-PV202500104511

PATIENT
  Age: 62 Year
  Sex: Female

DRUGS (6)
  1. BRAFTOVI [Suspect]
     Active Substance: ENCORAFENIB
     Indication: Lung neoplasm malignant
     Dosage: 450 MG ORALLY ONCE DAILY
     Route: 048
     Dates: start: 20250815, end: 20250817
  2. BRAFTOVI [Suspect]
     Active Substance: ENCORAFENIB
     Dosage: 300 MG, 1X/DAY
     Route: 048
     Dates: start: 20250817
  3. BRAFTOVI [Suspect]
     Active Substance: ENCORAFENIB
     Dosage: 300 MG, 1X/DAY (ONCE DAILY)
     Route: 048
     Dates: start: 20250905, end: 2025
  4. MEKTOVI [Suspect]
     Active Substance: BINIMETINIB
     Indication: Lung neoplasm malignant
     Dosage: 45 MG ORALLY TWICE DAILY
     Route: 048
     Dates: start: 20250815, end: 20250817
  5. MEKTOVI [Suspect]
     Active Substance: BINIMETINIB
     Dosage: 30 MG, 2X/DAY
     Route: 048
     Dates: start: 20250817
  6. MEKTOVI [Suspect]
     Active Substance: BINIMETINIB
     Dosage: 30MG TWICE DAILY
     Route: 048
     Dates: start: 20250905, end: 2025

REACTIONS (6)
  - Urinary retention [Recovered/Resolved]
  - Renal impairment [Recovered/Resolved]
  - Dyspnoea [Not Recovered/Not Resolved]
  - Vomiting [Recovered/Resolved]
  - Renal disorder [Recovered/Resolved]
  - Oedema peripheral [Recovered/Resolved]

NARRATIVE: CASE EVENT DATE: 20250101
